FAERS Safety Report 21497154 (Version 1)
Quarter: 2022Q4

REPORT INFORMATION
  Report Type: Report from Study
  Country: US (occurrence: US)
  Receive Date: 20221023
  Receipt Date: 20221023
  Transmission Date: 20230113
  Serious: No
  Sender: FDA-Public Use
  Company Number: US-ABBVIE-4147472

PATIENT
  Age: 37 Year
  Sex: Male

DRUGS (4)
  1. RINVOQ [Suspect]
     Active Substance: UPADACITINIB
     Indication: Colitis ulcerative
     Route: 048
     Dates: start: 20220809
  2. Pfizer/BioNTech [Concomitant]
     Indication: COVID-19 immunisation
     Dosage: 1ST DOSE, FREQUENCY: 1 IN 1 ONCE
     Route: 030
  3. Pfizer/BioNTech [Concomitant]
     Indication: COVID-19 immunisation
     Dosage: 2ND DOSE, FREQUENCY: 1 IN 1 ONCE
     Route: 030
  4. Pfizer/BioNTech [Concomitant]
     Indication: COVID-19 immunisation
     Dosage: 3RD DOSE, FREQUENCY: 1 IN 1 ONCE, FIRST ADMIN AND LAST DATE WAS 01 JAN 2022
     Route: 030

REACTIONS (2)
  - Alopecia [Unknown]
  - Folliculitis [Not Recovered/Not Resolved]

NARRATIVE: CASE EVENT DATE: 20220801
